FAERS Safety Report 5824640-8 (Version None)
Quarter: 2008Q3

REPORT INFORMATION
  Report Type: 
  Country: None (occurrence: None)
  Receive Date: 20080721
  Receipt Date: 20080710
  Transmission Date: 20090109
  Serious: Yes (Death, Hospitalization)
  Sender: FDA-Public Use
  Company Number: GXKR2008JP06451

PATIENT
  Age: 45 Year
  Sex: Female

DRUGS (2)
  1. METHYLPREDNISOLONE [Suspect]
     Indication: IMMUNOSUPPRESSION
     Dosage: 1 G, QD PULSE
  2. PREDNISOLONE (NGX) (PREDNSIOLONE) [Suspect]
     Indication: IMMUNOSUPPRESSION
     Dosage: 50 MG (1 MG/KG), ORAL
     Route: 048

REACTIONS (5)
  - CYTOMEGALOVIRUS GASTROINTESTINAL INFECTION [None]
  - GASTRITIS EROSIVE [None]
  - ILEAL ULCER [None]
  - MULTI-ORGAN FAILURE [None]
  - PERITONITIS [None]
